FAERS Safety Report 14242427 (Version 1)
Quarter: 2017Q4

REPORT INFORMATION
  Report Type: Spontaneous
  Country: US (occurrence: US)
  Receive Date: 20171201
  Receipt Date: 20171201
  Transmission Date: 20180321
  Serious: No
  Sender: FDA-Public Use
  Company Number: US-PFIZER INC-2017513765

PATIENT
  Sex: Male

DRUGS (1)
  1. ADVIL [Suspect]
     Active Substance: IBUPROFEN
     Dosage: UNK

REACTIONS (4)
  - Product use complaint [Unknown]
  - Foreign body in respiratory tract [Unknown]
  - Dysphagia [Unknown]
  - Throat irritation [Unknown]

NARRATIVE: CASE EVENT DATE: 20171128
